FAERS Safety Report 18341277 (Version 1)
Quarter: 2020Q4

REPORT INFORMATION
  Report Type: Spontaneous
  Country: NL (occurrence: NL)
  Receive Date: 20201003
  Receipt Date: 20201003
  Transmission Date: 20210113
  Serious: Yes (Other)
  Sender: FDA-Public Use
  Company Number: NL-TEVA-2020-NL-1833689

PATIENT
  Age: 62 Year
  Sex: Male
  Weight: 98 kg

DRUGS (19)
  1. ATENOLOL TABLET  50MG / BRAND NAME NOT SPECIFIED [Concomitant]
     Dosage: 50 MILLIGRAM DAILY; THERAPY START DATE:ASKU, THERAPY END DATE:ASKU
  2. ACETYLSALICYLZUUR DISPERTABLET 80MG / BRAND NAME NOT SPECIFIED [Concomitant]
     Dosage: 80 MILLIGRAM DAILY; THERAPY START DATE:ASKU, THERAPY END DATE:ASKU
  3. SALBUTAMOL AEROSOL 100UG/DO / BRAND NAME NOT SPECIFIED [Concomitant]
     Dosage: 400 MILLIGRAM DAILY; THERAPY START DATE:ASKU , THERAPY END DATE:ASKU
  4. NIFEDIPINE TABLET RETARD 10MG / BRAND NAME NOT SPECIFIED [Concomitant]
     Dosage: 10 MILLIGRAM DAILY; THERAPY START DATE:ASKU, THERAPY END DATE:ASKU
  5. IPRATROPIUM AEROSOL 20UG/DO / BRAND NAME NOT SPECIFIED [Concomitant]
     Dosage: 80 MICROGRAM DAILY;  THERAPY START DATE:ASKU, THERAPY END DATE:ASKU
  6. PAROXETINE TABLET 10MG / BRAND NAME NOT SPECIFIED [Concomitant]
     Dosage: 30 MILLIGRAM DAILY; THERAPY START DATE:ASKU, THERAPY END DATE:ASKU
  7. CARBOMEER OOGGEL 2MG/G (CARBOMEER 980) / BRAND NAME NOT SPECIFIED [Concomitant]
     Dosage: 8 GTT DAILY; 2 DROPS,THERAPY START DATE: ASKU,THERAPY END DATE:ASKU
  8. SUFENTANIL INJVLST 50UG/ML / BRAND NAME NOT SPECIFIED [Concomitant]
     Dosage: 1 DOSAGE FORMS ,VV,THERAPY START DATE:ASKU, THERAPY END DATE:ASKU
  9. MAGNESIUMHYDROXIDE KAUWTABLET 724MG / BRAND NAME NOT SPECIFIED [Concomitant]
     Dosage: 4344 MILLIGRAM DAILY; THERAPY START DATE:ASKU, THERAPY END DATE:ASKU
  10. OXAZEPAM TABLET 10MG / BRAND NAME NOT SPECIFIED [Concomitant]
     Active Substance: OXAZEPAM
     Dosage: 15 MILLIGRAM DAILY;  THERAPY START DATE:ASKU, THERAPY END DATE:ASKU
  11. SIMVASTATINE TABLET FO 80MG / BRAND NAME NOT SPECIFIED [Suspect]
     Active Substance: SIMVASTATIN
     Indication: HYPERCHOLESTEROLAEMIA
     Dosage: 80 MILLIGRAM DAILY;
     Dates: start: 2010, end: 20200831
  12. PANTOPRAZOL INJECTIEPOEDER 40MG / BRAND NAME NOT SPECIFIED [Concomitant]
     Dosage: 40 MILLIGRAM DAILY; THERAPY START DATE:ASKU, THERAPY END DATE:ASKU
  13. METOCLOPRAMIDE INJVLST  5MG/ML (HCL) / BRAND NAME NOT SPECIFIED [Concomitant]
     Dosage: 15 MILLIGRAM DAILY; THERAPY START DATE:ASKU, THERAPY END DATE:ASKU
  14. VORICONAZOL INFUUS / BRAND NAME NOT SPECIFIED [Interacting]
     Active Substance: VORICONAZOLE
     Indication: BRONCHOPULMONARY ASPERGILLOSIS
     Dosage: 640 MILLIGRAM DAILY; THERAPY END DATE :ASKU
     Dates: start: 20200828
  15. NORADRENALINE INFVLST 0,2MG/ML / BRAND NAME NOT SPECIFIED [Concomitant]
     Dosage: 1 DOSAGE FORMS ,VV,THERAPY START DATE:ASKU, THERAPY END DATE:ASKU
  16. TEMAZEPAM CAPSULE 20MG / BRAND NAME NOT SPECIFIED [Concomitant]
     Dosage: 20 MILLIGRAM DAILY; THERAPY START DATE:ASKU, THERAPY END DATE:ASKU
  17. ZOPICLON TABLET 7,5MG / BRAND NAME NOT SPECIFIED [Concomitant]
     Dosage: 7.5 MILLIGRAM DAILY;  IF NECESSARY ONE EXTRA,THERAPY START DATE:ASKU, THERAPY END DATE:ASKU
  18. NADROPARINE INJVLST  9500IE/ML / FRAXIPARINE INJVLST 2850IE/0,3ML (950 [Concomitant]
     Dosage: .3 ML DAILY; THERAPY START DATE:ASKU, THERAPY END DATE:ASKU
  19. INSULINE ASPART INJVLST 100E/ML / NOVORAPID INJVLST 100E/ML FLACON 10M [Concomitant]
     Dosage: 4 IU ,VV: START PUMP ON SEH 4 UNITS,THERAPY START DATE:ASKU,THERAPY END DATE:ASKU

REACTIONS (3)
  - Acute kidney injury [Recovering/Resolving]
  - Drug interaction [Unknown]
  - Rhabdomyolysis [Recovering/Resolving]

NARRATIVE: CASE EVENT DATE: 20200831
